FAERS Safety Report 10384154 (Version 1)
Quarter: 2014Q3

REPORT INFORMATION
  Report Type: Spontaneous
  Country: US (occurrence: US)
  Receive Date: 20140814
  Receipt Date: 20140814
  Transmission Date: 20150326
  Serious: No
  Sender: FDA-Public Use
  Company Number: US-PFIZER INC-2014222877

PATIENT
  Sex: Female

DRUGS (1)
  1. TYGACIL [Suspect]
     Active Substance: TIGECYCLINE
     Indication: WOUND INFECTION
     Dosage: UNK
     Route: 042
     Dates: start: 20120511, end: 20120524

REACTIONS (9)
  - Rash [Unknown]
  - Multi-organ disorder [Unknown]
  - Vasculitis [Unknown]
  - Skin lesion [Unknown]
  - Neuralgia [Unknown]
  - Ulcer [Unknown]
  - Alopecia [Unknown]
  - Abdominal pain [Unknown]
  - Scar [Unknown]

NARRATIVE: CASE EVENT DATE: 20120608
